FAERS Safety Report 25337946 (Version 1)
Quarter: 2025Q2

REPORT INFORMATION
  Report Type: Spontaneous
  Country: BE (occurrence: BE)
  Receive Date: 20250520
  Receipt Date: 20250520
  Transmission Date: 20250716
  Serious: Yes (Life-Threatening, Hospitalization, Other)
  Sender: BRISTOL-MYERS SQUIBB COMPANY
  Company Number: None

PATIENT
  Age: 84 Year
  Sex: Male

DRUGS (1)
  1. ELIQUIS [Suspect]
     Active Substance: APIXABAN
     Indication: Atrial fibrillation
     Dosage: 2 TIMES 1 TABLET PER DAY
     Route: 048

REACTIONS (3)
  - Muscle haemorrhage [Recovered/Resolved with Sequelae]
  - Haematoma muscle [Recovered/Resolved with Sequelae]
  - Pain [Recovered/Resolved with Sequelae]
